FAERS Safety Report 13506896 (Version 4)
Quarter: 2020Q2

REPORT INFORMATION
  Report Type: Spontaneous
  Country: AR (occurrence: AR)
  Receive Date: 20170502
  Receipt Date: 20200411
  Transmission Date: 20200713
  Serious: Yes (Other)
  Sender: FDA-Public Use
  Company Number: AR-AMGEN-ARGSP2017066274

PATIENT
  Age: 54 Year
  Sex: Female

DRUGS (2)
  1. ENBREL [Suspect]
     Active Substance: ETANERCEPT
     Dosage: 50 MILLIGRAM, QWK
     Route: 065
     Dates: start: 20080504
  2. ENBREL [Suspect]
     Active Substance: ETANERCEPT
     Indication: RHEUMATOID ARTHRITIS
     Dosage: 50 MILLIGRAM, CYCLICAL (EVERY 15 DAYS)
     Route: 065
     Dates: start: 20080504

REACTIONS (12)
  - Inflammation [Recovering/Resolving]
  - Visual impairment [Recovered/Resolved]
  - Red blood cell count increased [Recovering/Resolving]
  - Prolapse [Recovered/Resolved]
  - Hypokinesia [Recovered/Resolved]
  - Intentional product misuse [Unknown]
  - Pain in extremity [Recovering/Resolving]
  - Inappropriate schedule of product administration [Unknown]
  - Anxiety [Recovered/Resolved]
  - Pyrexia [Recovered/Resolved]
  - Cystitis [Not Recovered/Not Resolved]
  - Tooth infection [Recovering/Resolving]

NARRATIVE: CASE EVENT DATE: 20080504
